FAERS Safety Report 9975509 (Version 1)
Quarter: 2014Q1

REPORT INFORMATION
  Report Type: Report from Study
  Country: US (occurrence: US)
  Receive Date: 20140306
  Receipt Date: 20140306
  Transmission Date: 20141002
  Serious: No
  Sender: FDA-Public Use
  Company Number: US-ABBVIE-13P-163-1158510-00

PATIENT
  Age: 62 Year
  Sex: Female
  Weight: 86.26 kg

DRUGS (7)
  1. HUMIRA [Suspect]
     Indication: RHEUMATOID ARTHRITIS
     Dates: start: 201209
  2. PREDNISONE [Concomitant]
     Indication: RHEUMATOID ARTHRITIS
  3. UNNAMED MEDICATION [Concomitant]
     Indication: HYPOTHYROIDISM
  4. VITAMIN B12 [Concomitant]
     Indication: VITAMIN SUPPLEMENTATION
  5. MULTIVITAMIN [Concomitant]
     Indication: VITAMIN SUPPLEMENTATION
  6. ZOLOFT [Concomitant]
     Indication: ANXIETY
  7. ZOLOFT [Concomitant]
     Indication: MOOD SWINGS

REACTIONS (3)
  - Poor quality drug administered [Not Recovered/Not Resolved]
  - Injection site inflammation [Unknown]
  - Rheumatoid arthritis [Not Recovered/Not Resolved]
